FAERS Safety Report 20167245 (Version 1)
Quarter: 2021Q4

REPORT INFORMATION
  Report Type: Spontaneous
  Country: US (occurrence: None)
  Receive Date: 20211208
  Receipt Date: 20211208
  Transmission Date: 20220303
  Serious: Yes (Other)
  Sender: FDA-Public Use
  Company Number: None

PATIENT
  Age: 55 Year
  Sex: Female

DRUGS (4)
  1. LOSARTAN [Suspect]
     Active Substance: LOSARTAN
     Indication: Blood pressure measurement
     Dosage: FREQUENCY : AT BEDTIME;?
     Route: 048
     Dates: start: 20211206, end: 20211207
  2. CYCLOBENZAPRINE [Concomitant]
     Active Substance: CYCLOBENZAPRINE
  3. METOPROLOL TART 25MG TAB [Concomitant]
  4. PRAVASTATIN 40MG TAB [Concomitant]

REACTIONS (2)
  - Hypoaesthesia [None]
  - Insomnia [None]

NARRATIVE: CASE EVENT DATE: 20211206
